FAERS Safety Report 25984617 (Version 1)
Quarter: 2025Q4

REPORT INFORMATION
  Report Type: Spontaneous
  Country: JP (occurrence: JP)
  Receive Date: 20251031
  Receipt Date: 20251031
  Transmission Date: 20260119
  Serious: Yes (Other)
  Sender: GILEAD
  Company Number: JP-GILEAD-2025-0734661

PATIENT
  Age: 37 Year

DRUGS (2)
  1. TRODELVY [Suspect]
     Active Substance: SACITUZUMAB GOVITECAN-HZIY
     Indication: Triple negative breast cancer
     Dosage: UNK
     Route: 065
     Dates: start: 20250424
  2. TRODELVY [Suspect]
     Active Substance: SACITUZUMAB GOVITECAN-HZIY
     Dosage: 7.5 MG
     Route: 065
     Dates: start: 2025, end: 202506

REACTIONS (2)
  - Triple negative breast cancer [Unknown]
  - Diarrhoea [Unknown]
